FAERS Safety Report 4908090-4 (Version None)
Quarter: 2006Q1

REPORT INFORMATION
  Report Type: 
  Country: None (occurrence: None)
  Receive Date: 20060210
  Receipt Date: 20060130
  Transmission Date: 20060701
  Serious: Yes (Hospitalization)
  Sender: FDA-Public Use
  Company Number: 2006CG00226

PATIENT
  Age: 67 Year
  Sex: Female
  Weight: 56 kg

DRUGS (2)
  1. NOLVADEX [Suspect]
     Indication: BREAST CANCER
     Route: 048
     Dates: start: 19981203, end: 19990826
  2. RADIOTHERAPY TO BREAST [Suspect]
     Indication: BREAST CANCER
     Dosage: 25 FRACTIONS OF 2 GY
     Dates: start: 19981203, end: 19990112

REACTIONS (8)
  - FATIGUE [None]
  - GASTROINTESTINAL DYSPLASIA [None]
  - HOT FLUSH [None]
  - INSOMNIA [None]
  - METRORRHAGIA [None]
  - MYELODYSPLASTIC SYNDROME [None]
  - NAUSEA [None]
  - SIDEROBLASTIC ANAEMIA [None]
